FAERS Safety Report 5976382-6 (Version None)
Quarter: 2008Q4

REPORT INFORMATION
  Report Type: 
  Country: None (occurrence: None)
  Receive Date: 20081126
  Receipt Date: 20080519
  Transmission Date: 20090506
  Serious: Yes (Other)
  Sender: FDA-Public Use
  Company Number: 2008BH005240

PATIENT
  Age: 27 Year
  Sex: Female
  Weight: 60 kg

DRUGS (13)
  1. DIANEAL [Suspect]
     Indication: PERITONEAL DIALYSIS
     Dosage: 6 L ; EVERY DAY ; IP
     Route: 033
     Dates: start: 20050608
  2. EXTRANEAL [Suspect]
     Indication: PERITONEAL DIALYSIS
     Dosage: 2 L ; EVERY DAY ; IP
     Route: 033
     Dates: start: 20070607, end: 20080409
  3. HECTOROL [Concomitant]
  4. BACTRIM [Concomitant]
  5. FOLTX [Concomitant]
  6. ASCORBIC ACID [Concomitant]
  7. RENAGEL [Concomitant]
  8. LAC-HYDRIN [Concomitant]
  9. EPO [Concomitant]
  10. SENSIPAR [Concomitant]
  11. POTASSIUM CHLORIDE [Concomitant]
  12. TOPROL-XL [Concomitant]
  13. VITAMIN D [Concomitant]

REACTIONS (1)
  - PERITONITIS BACTERIAL [None]
